FAERS Safety Report 11453549 (Version 1)
Quarter: 2015Q3

REPORT INFORMATION
  Report Type: Spontaneous
  Country: US (occurrence: US)
  Receive Date: 20150831
  Receipt Date: 20150831
  Transmission Date: 20151125
  Serious: No
  Sender: FDA-Public Use
  Company Number: US-ELI_LILLY_AND_COMPANY-US200906000207

PATIENT
  Age: 74 Year
  Sex: Female

DRUGS (1)
  1. CYMBALTA [Suspect]
     Active Substance: DULOXETINE HYDROCHLORIDE
     Indication: NEURALGIA
     Dosage: 30 MG, DAILY (1/D)
     Route: 048
     Dates: start: 20090528, end: 20090529

REACTIONS (17)
  - Adverse event [Not Recovered/Not Resolved]
  - Malaise [Unknown]
  - Off label use [Unknown]
  - Restlessness [Not Recovered/Not Resolved]
  - Tremor [Unknown]
  - Diarrhoea [Recovered/Resolved]
  - Insomnia [Unknown]
  - Vomiting [Unknown]
  - Eructation [Unknown]
  - Haemorrhoids [Unknown]
  - Fungal infection [Not Recovered/Not Resolved]
  - Activities of daily living impaired [Unknown]
  - Faeces discoloured [Unknown]
  - Abdominal discomfort [Recovering/Resolving]
  - Change of bowel habit [Not Recovered/Not Resolved]
  - Decreased appetite [Unknown]
  - Headache [Recovered/Resolved]

NARRATIVE: CASE EVENT DATE: 200905
